FAERS Safety Report 10393379 (Version 1)
Quarter: 2014Q3

REPORT INFORMATION
  Report Type: Spontaneous
  Country: CA (occurrence: CA)
  Receive Date: 20140819
  Receipt Date: 20140819
  Transmission Date: 20150326
  Serious: Yes (Hospitalization)
  Sender: FDA-Public Use
  Company Number: CA-JNJFOC-20140812021

PATIENT
  Age: 84 Year
  Sex: Female
  Weight: 93 kg

DRUGS (3)
  1. LUTEIN [Concomitant]
     Active Substance: LUTEIN
     Route: 048
  2. XARELTO [Suspect]
     Active Substance: RIVAROXABAN
     Indication: PRODUCT USED FOR UNKNOWN INDICATION
     Route: 048
  3. GLUCOSAMINE [Concomitant]
     Active Substance: GLUCOSAMINE
     Route: 048

REACTIONS (4)
  - Abasia [Unknown]
  - Cardiac failure congestive [Unknown]
  - Muscular weakness [Unknown]
  - Hyperviscosity syndrome [Unknown]
